FAERS Safety Report 8328916-4 (Version None)
Quarter: 2012Q2

REPORT INFORMATION
  Report Type: 
  Country: None (occurrence: None)
  Receive Date: 20120502
  Receipt Date: 20101115
  Transmission Date: 20120825
  Serious: No
  Sender: FDA-Public Use
  Company Number: US-TEVA-2010005077

PATIENT
  Age: 60 Year
  Sex: Male
  Weight: 135.29 kg

DRUGS (1)
  1. NUVIGIL [Suspect]
     Indication: SLEEP APNOEA SYNDROME
     Dosage: 150 MILLIGRAM;
     Route: 048
     Dates: start: 20100901, end: 20101101

REACTIONS (1)
  - RASH MACULAR [None]
